FAERS Safety Report 9914604 (Version 1)
Quarter: 2014Q1

REPORT INFORMATION
  Report Type: Spontaneous
  Country: BR (occurrence: BR)
  Receive Date: 20140220
  Receipt Date: 20140220
  Transmission Date: 20141002
  Serious: Yes (Other)
  Sender: FDA-Public Use
  Company Number: BR-IPSEN BIOPHARMACEUTICALS, INC.-2014-0842

PATIENT
  Age: 26 Year
  Sex: Female

DRUGS (2)
  1. DYSPORT [Suspect]
     Indication: MIGRAINE
     Dosage: 310 UNITS
     Route: 030
  2. DYSPORT [Suspect]
     Indication: OFF LABEL USE

REACTIONS (2)
  - Abortion [Unknown]
  - Exposure during pregnancy [Unknown]
